FAERS Safety Report 25363767 (Version 1)
Quarter: 2025Q2

REPORT INFORMATION
  Report Type: Spontaneous
  Country: US (occurrence: None)
  Receive Date: 20250527
  Receipt Date: 20250527
  Transmission Date: 20250716
  Serious: Yes (Disabling)
  Sender: FDA-CTU
  Company Number: None

PATIENT
  Age: 34 Year
  Sex: Female
  Weight: 63 kg

DRUGS (7)
  1. CETIRIZINE HYDROCHLORIDE [Suspect]
     Active Substance: CETIRIZINE HYDROCHLORIDE
     Indication: Pruritus
  2. 300mg bupropion QD [Concomitant]
  3. 15mg escitalopram QD [Concomitant]
  4. 1000 IU vitamin D QD [Concomitant]
  5. 10mg citrizine QD [Concomitant]
  6. multivitamin QD [Concomitant]
  7. probiotic QD [Concomitant]

REACTIONS (2)
  - Pruritus [None]
  - Withdrawal syndrome [None]

NARRATIVE: CASE EVENT DATE: 20250527
